FAERS Safety Report 13601440 (Version 1)
Quarter: 2017Q2

REPORT INFORMATION
  Report Type: Spontaneous
  Country: US (occurrence: US)
  Receive Date: 20170601
  Receipt Date: 20170601
  Transmission Date: 20170830
  Serious: Yes (Other)
  Sender: FDA-Public Use
  Company Number: None

PATIENT
  Age: 44 Year
  Sex: Female
  Weight: 66.6 kg

DRUGS (9)
  1. FLONASE [Concomitant]
     Active Substance: FLUTICASONE PROPIONATE
  2. GARCINIA CAMBOGIA [Concomitant]
     Active Substance: HYDROXYCITRIC ACID
  3. MULTI-VITAMINS [Concomitant]
  4. ADVIL [Concomitant]
     Active Substance: IBUPROFEN
  5. CELEXA [Concomitant]
     Active Substance: CITALOPRAM HYDROBROMIDE
  6. GREEN COFFEE EXTRACT [Concomitant]
  7. CALCIUM [Concomitant]
     Active Substance: CALCIUM
  8. FISH OIL [Concomitant]
     Active Substance: FISH OIL
  9. AFRIN [Suspect]
     Active Substance: OXYMETAZOLINE
     Indication: PULMONARY CONGESTION
     Dosage: QUANTITY:2 SPRAY(S);OTHER ROUTE:NASAL SPRAY?
     Route: 045
     Dates: start: 20170530, end: 20170601

REACTIONS (1)
  - Anosmia [None]

NARRATIVE: CASE EVENT DATE: 20170531
